FAERS Safety Report 11858313 (Version 1)
Quarter: 2015Q4

REPORT INFORMATION
  Report Type: Spontaneous
  Country: CH (occurrence: CH)
  Receive Date: 20151222
  Receipt Date: 20151222
  Transmission Date: 20160305
  Serious: Yes (Other)
  Sender: FDA-Public Use
  Company Number: CH-BAYER-2015-485176

PATIENT
  Age: 48 Year
  Sex: Female
  Weight: 66 kg

DRUGS (1)
  1. MIRENA [Suspect]
     Active Substance: LEVONORGESTREL
     Indication: MENORRHAGIA
     Dosage: 20 MCG/24HR, CONT
     Route: 015
     Dates: start: 20111109, end: 20130909

REACTIONS (8)
  - Vulvovaginal pain [Recovered/Resolved]
  - Mouth ulceration [Recovered/Resolved]
  - Vulvovaginal ulceration [None]
  - Mouth ulceration [None]
  - Pyrexia [Recovered/Resolved]
  - Glossodynia [Recovered/Resolved]
  - Vulvovaginal ulceration [Recovered/Resolved]
  - Tongue discolouration [Recovered/Resolved]

NARRATIVE: CASE EVENT DATE: 201210
